FAERS Safety Report 18243433 (Version 2)
Quarter: 2020Q3

REPORT INFORMATION
  Report Type: Spontaneous
  Country: US (occurrence: US)
  Receive Date: 20200908
  Receipt Date: 20200928
  Transmission Date: 20201103
  Serious: Yes (Death, Hospitalization)
  Sender: FDA-Public Use
  Company Number: US-TEVA-2020-US-1824619

PATIENT
  Age: 28 Year
  Sex: Male

DRUGS (1)
  1. OXYCODONE [Suspect]
     Active Substance: OXYCODONE
     Indication: PAIN
     Dosage: OXYCODONE DOSES EQUAL TO 10MG (DOSE STATED BY PATIENT) WERE CRUSHED, MIXED WITH WATER AND RECEIVE...
     Route: 054

REACTIONS (5)
  - Depressed level of consciousness [Recovered/Resolved]
  - Unresponsive to stimuli [Recovered/Resolved]
  - Intentional product misuse [Fatal]
  - Intentional product use issue [Fatal]
  - Death [Fatal]
